FAERS Safety Report 6292562-7 (Version None)
Quarter: 2009Q3

REPORT INFORMATION
  Report Type: 
  Country: None (occurrence: None)
  Receive Date: 20090731
  Receipt Date: 20090723
  Transmission Date: 20100115
  Serious: Yes (Hospitalization)
  Sender: FDA-Public Use
  Company Number: FR-PFIZER INC-2009235708

PATIENT
  Age: 64 Year

DRUGS (4)
  1. SUNITINIB MALATE [Suspect]
     Indication: HEPATIC NEOPLASM MALIGNANT RECURRENT
     Dosage: 37.5 MG, UNK
     Route: 048
     Dates: start: 20090319
  2. MANIDIPINE [Concomitant]
     Indication: HYPERTENSION
     Dosage: 1 DF, 1X/DAY
     Dates: start: 20090511
  3. TRIATEC [Concomitant]
     Indication: HYPERTENSION
     Dosage: 1 DF, 1X/DAY
     Dates: start: 20060101
  4. BROMAZEPAM [Concomitant]
     Dosage: 0.5 DF, 1X/DAY
     Dates: start: 20070101

REACTIONS (4)
  - BILIRUBIN CONJUGATED INCREASED [None]
  - BLOOD BILIRUBIN INCREASED [None]
  - GENERAL PHYSICAL HEALTH DETERIORATION [None]
  - THROMBOCYTOPENIA [None]
